FAERS Safety Report 8238788-4 (Version None)
Quarter: 2012Q1

REPORT INFORMATION
  Report Type: 
  Country: None (occurrence: None)
  Receive Date: 20120327
  Receipt Date: 20120315
  Transmission Date: 20120608
  Serious: Yes (Hospitalization)
  Sender: FDA-Public Use
  Company Number: US-ELI_LILLY_AND_COMPANY-US201108003434

PATIENT
  Sex: Male

DRUGS (18)
  1. WARFARIN SODIUM [Concomitant]
     Dosage: 2.5 MG, QD
  2. LEVOTHYROXINE SODIUM [Concomitant]
     Dosage: 88 MG, QD
  3. RAPIDFLOX [Concomitant]
     Dosage: UNK, QD
  4. WARFARIN SODIUM [Concomitant]
     Dosage: 5 MG, QD
  5. VITAMIN B-12 [Concomitant]
     Dosage: UNK, MONTHLY (1/M)
  6. VITAMIN B3 [Concomitant]
     Dosage: 1000 IU, QD
  7. STOOL SOFTENER [Concomitant]
     Dosage: UNK, BID
  8. MORPHINE [Concomitant]
     Dosage: UNK, PRN
  9. FORTEO [Suspect]
     Indication: OSTEOPOROSIS
     Dosage: 20 UG, QD
     Dates: start: 20111101
  10. BROVANA [Concomitant]
     Dosage: UNK, BID
  11. LORAZEPAM [Concomitant]
     Dosage: 1 MG, TID
  12. POTASSIUM [Concomitant]
     Dosage: 20 MG, QD
  13. BUDESONIDE [Concomitant]
     Dosage: UNK, BID
  14. MUCINEX [Concomitant]
     Dosage: 12 MG, BID
  15. FORTEO [Suspect]
     Dosage: 20 UG, QD
  16. LYRICA [Concomitant]
     Dosage: 50 MG, QD
  17. PREDNISONE TAB [Concomitant]
     Dosage: 15 MG, QD
  18. ALBUTEROL [Concomitant]
     Dosage: UNK, QID

REACTIONS (7)
  - SPINAL FRACTURE [None]
  - INJECTION SITE DISCOLOURATION [None]
  - PAIN [None]
  - CHRONIC OBSTRUCTIVE PULMONARY DISEASE [None]
  - OROPHARYNGEAL PAIN [None]
  - COUGH [None]
  - INTENTIONAL DRUG MISUSE [None]
